FAERS Safety Report 6386117-3 (Version None)
Quarter: 2009Q4

REPORT INFORMATION
  Report Type: 
  Country: None (occurrence: None)
  Receive Date: 20091002
  Receipt Date: 20081218
  Transmission Date: 20100525
  Serious: No
  Sender: FDA-Public Use
  Company Number: US-ASTRAZENECA-2008UW28316

PATIENT
  Age: 72 Year
  Sex: Female
  Weight: 67.1 kg

DRUGS (12)
  1. ARIMIDEX [Suspect]
     Route: 048
     Dates: start: 20050101
  2. APAP TAB [Concomitant]
  3. ZOCOR [Concomitant]
  4. PLAVIX [Concomitant]
  5. ZOLOFT [Concomitant]
  6. GLIPIZIDE [Concomitant]
  7. ELAVIL [Concomitant]
  8. NOVOLIN R [Concomitant]
  9. ANAPRIL [Concomitant]
  10. MULTI-VITAMIN [Concomitant]
  11. VITAMIN E [Concomitant]
  12. FOLIC ACID [Concomitant]

REACTIONS (3)
  - ARTHRALGIA [None]
  - ARTHRITIS [None]
  - GROIN PAIN [None]
